FAERS Safety Report 7121974-4 (Version None)
Quarter: 2010Q4

REPORT INFORMATION
  Report Type: 
  Country: None (occurrence: None)
  Receive Date: 20101124
  Receipt Date: 20101116
  Transmission Date: 20110411
  Serious: Yes (Congenital Anomaly)
  Sender: FDA-Public Use
  Company Number: A0847399A

PATIENT
  Sex: Female

DRUGS (6)
  1. PAXIL [Suspect]
     Indication: ANXIETY
     Dosage: 40MG PER DAY
  2. NEURONTIN [Concomitant]
     Indication: ANXIETY
  3. ZITHROMAX [Concomitant]
     Indication: BRONCHITIS
  4. CLARITIN [Concomitant]
  5. NASONEX [Concomitant]
  6. ALBUTEROL [Concomitant]

REACTIONS (6)
  - ATRIAL SEPTAL DEFECT [None]
  - BUNDLE BRANCH BLOCK RIGHT [None]
  - DRUG EXPOSURE DURING PREGNANCY [None]
  - LEFT VENTRICULAR HYPERTROPHY [None]
  - LUNG DISORDER [None]
  - PULMONARY VALVE STENOSIS [None]
